FAERS Safety Report 5623287-6 (Version None)
Quarter: 2008Q1

REPORT INFORMATION
  Report Type: 
  Country: None (occurrence: None)
  Receive Date: 20080212
  Receipt Date: 20080201
  Transmission Date: 20080703
  Serious: Yes (Other)
  Sender: FDA-Public Use
  Company Number: DE-JNJFOC-20071203136

PATIENT
  Sex: Female
  Weight: 82 kg

DRUGS (2)
  1. PALIPERIDONE [Suspect]
     Indication: PSYCHOTIC DISORDER
     Route: 048
  2. VENLAFAXIN [Concomitant]
     Indication: DEPRESSION
     Route: 048

REACTIONS (3)
  - LEUKOPENIA [None]
  - THROMBOCYTOPENIA [None]
  - WEIGHT INCREASED [None]
